FAERS Safety Report 5948680-3 (Version None)
Quarter: 2008Q4

REPORT INFORMATION
  Report Type: 
  Country: None (occurrence: None)
  Receive Date: 20081107
  Receipt Date: 20081022
  Transmission Date: 20090506
  Serious: Yes (Hospitalization)
  Sender: FDA-Public Use
  Company Number: 2008PL000177

PATIENT
  Age: 18 Year
  Sex: Female

DRUGS (2)
  1. IMURAN [Suspect]
     Indication: CROHN'S DISEASE
     Dosage: 125 MG;
  2. INFLIXIMAB [Concomitant]

REACTIONS (18)
  - ABDOMINAL PAIN [None]
  - ACUTE RESPIRATORY DISTRESS SYNDROME [None]
  - ANAEMIA [None]
  - ANOREXIA [None]
  - BLOOD TRIGLYCERIDES INCREASED [None]
  - CHROMATURIA [None]
  - DIARRHOEA HAEMORRHAGIC [None]
  - EPSTEIN-BARR VIRUS INFECTION [None]
  - HEPATITIS [None]
  - INFLUENZA LIKE ILLNESS [None]
  - LEUKOPENIA [None]
  - LYMPHOHISTIOCYTOSIS [None]
  - MOUTH ULCERATION [None]
  - PHARYNGEAL ERYTHEMA [None]
  - RASH MORBILLIFORM [None]
  - SERUM FERRITIN INCREASED [None]
  - TACHYCARDIA [None]
  - TONSILLAR HYPERTROPHY [None]
